FAERS Safety Report 25605473 (Version 2)
Quarter: 2025Q4

REPORT INFORMATION
  Report Type: Spontaneous
  Country: US (occurrence: US)
  Receive Date: 20250725
  Receipt Date: 20251023
  Transmission Date: 20260119
  Serious: Yes (Other)
  Sender: BRISTOL-MYERS SQUIBB COMPANY
  Company Number: US-BRISTOL-MYERS SQUIBB COMPANY-2025-104239

PATIENT
  Age: 26 Year
  Sex: Female

DRUGS (3)
  1. OPDIVO [Suspect]
     Active Substance: NIVOLUMAB
     Indication: Neoplasm malignant
  2. OPDIVO [Suspect]
     Active Substance: NIVOLUMAB
     Dosage: MONOTHERAPY
  3. YERVOY [Suspect]
     Active Substance: IPILIMUMAB
     Indication: Neoplasm malignant

REACTIONS (5)
  - Drug hypersensitivity [Unknown]
  - Pyrexia [Unknown]
  - Stomatitis [Unknown]
  - Alopecia [Unknown]
  - Autoimmune hypothyroidism [Unknown]

NARRATIVE: CASE EVENT DATE: 20250307
